FAERS Safety Report 15343142 (Version 1)
Quarter: 2018Q3

REPORT INFORMATION
  Report Type: Spontaneous
  Country: IN (occurrence: IN)
  Receive Date: 20180903
  Receipt Date: 20180903
  Transmission Date: 20181010
  Serious: Yes (Death, Life-Threatening, Other)
  Sender: FDA-Public Use
  Company Number: IN-ASTELLAS-2018US038881

PATIENT
  Age: 21 Year
  Sex: Female

DRUGS (1)
  1. AMPHOTERICIN B, LIPOSOME [Suspect]
     Active Substance: AMPHOTERICIN B
     Indication: ANTIFUNGAL PROPHYLAXIS
     Route: 042
     Dates: start: 20180723, end: 20180730

REACTIONS (8)
  - Pulmonary haemorrhage [Fatal]
  - Chest pain [Recovered/Resolved with Sequelae]
  - Back pain [Recovered/Resolved with Sequelae]
  - Off label use [Recovered/Resolved]
  - Tachycardia [Recovered/Resolved with Sequelae]
  - Hyperhidrosis [Recovered/Resolved with Sequelae]
  - Stem cell transplant [Unknown]
  - Klebsiella sepsis [Fatal]

NARRATIVE: CASE EVENT DATE: 20180723
